FAERS Safety Report 19471895 (Version 3)
Quarter: 2021Q3

REPORT INFORMATION
  Report Type: Report from Study
  Country: None (occurrence: DE)
  Receive Date: 20210628
  Receipt Date: 20210708
  Transmission Date: 20211014
  Serious: Yes (Hospitalization, Other)
  Sender: FDA-Public Use
  Company Number: DE-ABBVIE-21K-062-3965696-00

PATIENT
  Age: 79 Year
  Sex: Male
  Weight: 95 kg

DRUGS (28)
  1. DUODOPA [Suspect]
     Active Substance: CARBIDOPA\LEVODOPA
     Route: 050
     Dates: start: 202106, end: 202106
  2. QUETIAPIN 1A PHARMA [Concomitant]
     Active Substance: QUETIAPINE
     Indication: PRODUCT USED FOR UNKNOWN INDICATION
  3. MIRTAZAPIN [Concomitant]
     Active Substance: MIRTAZAPINE
     Indication: PRODUCT USED FOR UNKNOWN INDICATION
  4. L?THYROXIN [Concomitant]
     Active Substance: LEVOTHYROXINE SODIUM
     Indication: PRODUCT USED FOR UNKNOWN INDICATION
  5. EXELON [Concomitant]
     Active Substance: RIVASTIGMINE TARTRATE
     Indication: PRODUCT USED FOR UNKNOWN INDICATION
     Dosage: 3.3MG/24H, UNIT DOSE: 13.3MG/24H
  6. LYRICA [Concomitant]
     Active Substance: PREGABALIN
     Indication: PRODUCT USED FOR UNKNOWN INDICATION
  7. MADOPAR [Concomitant]
     Active Substance: BENSERAZIDE HYDROCHLORIDE\LEVODOPA
     Indication: PRODUCT USED FOR UNKNOWN INDICATION
  8. RAMIPRIL?RATIOPHARM COMP [Concomitant]
     Indication: PRODUCT USED FOR UNKNOWN INDICATION
     Dosage: FORM STRENGTH: 5MG/25MG
  9. ESOMEP [Concomitant]
     Active Substance: ESOMEPRAZOLE
     Indication: PRODUCT USED FOR UNKNOWN INDICATION
  10. VITAMIN B6 [Concomitant]
     Active Substance: PYRIDOXINE HYDROCHLORIDE
     Indication: PRODUCT USED FOR UNKNOWN INDICATION
  11. MOVICOL [Concomitant]
     Active Substance: POLYETHYLENE GLYCOL 3350\POTASSIUM CHLORIDE\SODIUM BICARBONATE\SODIUM CHLORIDE
     Indication: PRODUCT USED FOR UNKNOWN INDICATION
     Dosage: UNIT: SACHET
  12. TREVILOR RETARD [Concomitant]
     Active Substance: VENLAFAXINE HYDROCHLORIDE
     Indication: PRODUCT USED FOR UNKNOWN INDICATION
  13. LACTULOSE AIWA [Concomitant]
     Indication: PRODUCT USED FOR UNKNOWN INDICATION
     Dosage: FORM STRENGTH: 10G/15ML, UNIT: ML?IF NEEDED
  14. DUODOPA [Suspect]
     Active Substance: CARBIDOPA\LEVODOPA
     Route: 050
     Dates: start: 202106, end: 202106
  15. DUODOPA [Suspect]
     Active Substance: CARBIDOPA\LEVODOPA
     Dosage: MD 7 ML; CRD 5 ML/H; CRN 2.5 ML/H; ED 3 ML.
     Route: 050
     Dates: start: 2021
  16. VITAMIN D3 [Concomitant]
     Active Substance: CHOLECALCIFEROL
     Indication: PRODUCT USED FOR UNKNOWN INDICATION
  17. VITAMIN D [Concomitant]
     Active Substance: VITAMIN D NOS
     Indication: PRODUCT USED FOR UNKNOWN INDICATION
  18. VENLAFAXIN [Concomitant]
     Active Substance: VENLAFAXINE HYDROCHLORIDE
     Indication: PRODUCT USED FOR UNKNOWN INDICATION
     Dosage: CT
  19. QUETIAPIN [Concomitant]
     Active Substance: QUETIAPINE
     Indication: PRODUCT USED FOR UNKNOWN INDICATION
  20. NUTRISON ADVANCED PEPTISORB [Concomitant]
     Indication: PRODUCT USED FOR UNKNOWN INDICATION
     Dosage: FORM STRENTGH: 500ML, 90ML/H, UNIT: ML
  21. DUODOPA [Suspect]
     Active Substance: CARBIDOPA\LEVODOPA
     Indication: PARKINSON^S DISEASE
     Dosage: MD 7 ML; CRD 5 ML/H; CRN 2.5 ML/H; ED 3 ML
     Route: 050
     Dates: start: 20150114, end: 202106
  22. DUODOPA [Suspect]
     Active Substance: CARBIDOPA\LEVODOPA
     Route: 050
     Dates: start: 20210621, end: 2021
  23. PREGABALIN. [Concomitant]
     Active Substance: PREGABALIN
     Indication: PRODUCT USED FOR UNKNOWN INDICATION
  24. LATANO VISION [Concomitant]
     Indication: PRODUCT USED FOR UNKNOWN INDICATION
     Dosage: FORM STRENGTH: 50 MCG/ML, UNIT DOSE: 50 MCG/1ML, UNIT: DROPS
  25. LIDOCAINE. [Concomitant]
     Active Substance: LIDOCAINE
     Indication: PRODUCT USED FOR UNKNOWN INDICATION
     Dosage: F
  26. CARMEN [Concomitant]
     Indication: PRODUCT USED FOR UNKNOWN INDICATION
  27. DREISAFOL [Concomitant]
     Indication: PRODUCT USED FOR UNKNOWN INDICATION
  28. NUTRISON PROTEIN PLUS MULTI FIBER [Concomitant]
     Indication: PRODUCT USED FOR UNKNOWN INDICATION

REACTIONS (54)
  - Stoma site inflammation [Recovered/Resolved]
  - Axonal and demyelinating polyneuropathy [Unknown]
  - Stoma site infection [Unknown]
  - Prostatectomy [Unknown]
  - Neutrophil count increased [Unknown]
  - Peripheral swelling [Unknown]
  - White blood cell count increased [Unknown]
  - Urge incontinence [Unknown]
  - Stoma site inflammation [Unknown]
  - Fluid retention [Unknown]
  - Peripheral swelling [Unknown]
  - Swelling [Unknown]
  - Dementia [Unknown]
  - Oxygen saturation decreased [Unknown]
  - Vitamin B12 deficiency [Unknown]
  - Duodenal ulcer [Not Recovered/Not Resolved]
  - General physical health deterioration [Recovering/Resolving]
  - Intentional medical device removal by patient [Recovered/Resolved]
  - Respiratory rate increased [Unknown]
  - Pneumoperitoneum [Unknown]
  - C-reactive protein increased [Unknown]
  - Obesity [Unknown]
  - Incorrect route of product administration [Unknown]
  - Abdominal wall disorder [Unknown]
  - Benign prostatic hyperplasia [Unknown]
  - Device dislocation [Recovered/Resolved]
  - Wound infection [Unknown]
  - Device dislocation [Recovered/Resolved]
  - Eosinophil count decreased [Unknown]
  - Blood urea increased [Recovered/Resolved]
  - Monocyte count increased [Unknown]
  - Haemoglobin decreased [Unknown]
  - Lymphocyte count decreased [Unknown]
  - Dysphagia [Unknown]
  - Purulent discharge [Unknown]
  - Impaired healing [Unknown]
  - Muscle rigidity [Unknown]
  - Erythema [Unknown]
  - Respiratory tract congestion [Unknown]
  - Medical device site irritation [Unknown]
  - Immature granulocyte count increased [Unknown]
  - Immature granulocyte count increased [Unknown]
  - Pneumonia aspiration [Unknown]
  - Erosive duodenitis [Unknown]
  - Hypophagia [Unknown]
  - Polyneuropathy [Unknown]
  - Hypoventilation [Unknown]
  - Inspiratory capacity decreased [Unknown]
  - Fistula [Recovered/Resolved]
  - White blood cell count increased [Recovered/Resolved]
  - Haematocrit decreased [Unknown]
  - Red blood cell count decreased [Unknown]
  - Hallucination, visual [Unknown]
  - Constipation [Unknown]

NARRATIVE: CASE EVENT DATE: 202010
